FAERS Safety Report 5563288-X (Version None)
Quarter: 2007Q4

REPORT INFORMATION
  Report Type: 
  Country: None (occurrence: None)
  Receive Date: 20071211
  Receipt Date: 20071128
  Transmission Date: 20080405
  Serious: Yes (Death, Other)
  Sender: FDA-Public Use
  Company Number: 17966

PATIENT
  Age: 21 Year
  Sex: Male

DRUGS (9)
  1. VINCRISTINE [Suspect]
     Indication: ACUTE LYMPHOCYTIC LEUKAEMIA
  2. IDARUBICIN HCL [Suspect]
  3. ASPARAGINASE [Suspect]
  4. CYCLOPHOSPHAMIDE [Suspect]
  5. PREDNISONE [Concomitant]
  6. RED BLOOD CELLS [Concomitant]
  7. PLATELETS [Concomitant]
  8. CIPROFLOXACIN [Concomitant]
  9. NEUPOGEN [Concomitant]

REACTIONS (10)
  - LYMPHANGITIS [None]
  - MULTIPLE-DRUG RESISTANCE [None]
  - NECROTISING FASCIITIS [None]
  - NO THERAPEUTIC RESPONSE [None]
  - PSEUDOMONAL SEPSIS [None]
  - SCROTAL INFECTION [None]
  - SCROTAL OEDEMA [None]
  - SEPTIC SHOCK [None]
  - STAPHYLOCOCCAL SEPSIS [None]
  - WOUND INFECTION PSEUDOMONAS [None]
